FAERS Safety Report 6979141-0 (Version None)
Quarter: 2010Q3

REPORT INFORMATION
  Report Type: 
  Country: None (occurrence: None)
  Receive Date: 20100913
  Receipt Date: 20100908
  Transmission Date: 20110219
  Serious: Yes (Death, Hospitalization, Other)
  Sender: FDA-Public Use
  Company Number: PHHY2010BR59576

PATIENT
  Sex: Female
  Weight: 68 kg

DRUGS (8)
  1. EXELON [Suspect]
     Indication: DEMENTIA ALZHEIMER'S TYPE
     Dosage: 1.5 MG ONCE A DAY
     Route: 048
  2. EXELON [Suspect]
     Dosage: 3 MG ONCE A DAY
     Route: 048
  3. EXELON [Suspect]
     Dosage: 3 MG, TID
     Route: 048
  4. EXELON [Suspect]
     Dosage: 3 MG, BID
     Route: 048
  5. HYGROTON [Concomitant]
     Indication: HYPERTENSION
     Dosage: ONE TABLET A DAY
     Route: 048
  6. ENAPROTEC [Concomitant]
     Indication: HYPERTENSION
     Dosage: ONE TABLET A DAY
     Route: 048
  7. RISPERIDONE [Concomitant]
     Indication: SEDATIVE THERAPY
     Dosage: 1 DF, QID
     Route: 048
  8. HIDANTAL [Concomitant]
     Indication: CONVULSION
     Dosage: ONE TABLET A DAY
     Route: 048

REACTIONS (3)
  - BLOOD PRESSURE DECREASED [None]
  - CARDIO-RESPIRATORY ARREST [None]
  - CONVULSION [None]
